FAERS Safety Report 14187398 (Version 2)
Quarter: 2017Q4

REPORT INFORMATION
  Report Type: Report from Study
  Country: US (occurrence: US)
  Receive Date: 20171114
  Receipt Date: 20171221
  Transmission Date: 20180321
  Serious: Yes (Hospitalization, Other)
  Sender: FDA-Public Use
  Company Number: US-BAYER-2017-162653

PATIENT
  Age: 80 Year
  Sex: Male
  Weight: 95.24 kg

DRUGS (7)
  1. ADEMPAS [Suspect]
     Active Substance: RIOCIGUAT
     Indication: PULMONARY ARTERIAL HYPERTENSION
     Dosage: 1.0 MG, TID
     Route: 048
  2. ADEMPAS [Suspect]
     Active Substance: RIOCIGUAT
     Indication: PULMONARY ARTERIAL HYPERTENSION
     Dosage: 2.5 MG, TID
     Route: 048
  3. OPSUMIT [Concomitant]
     Active Substance: MACITENTAN
     Dosage: UNK
  4. ADEMPAS [Suspect]
     Active Substance: RIOCIGUAT
     Indication: PULMONARY ARTERIAL HYPERTENSION
     Dosage: UNK
     Dates: start: 20170414
  5. ADEMPAS [Suspect]
     Active Substance: RIOCIGUAT
     Indication: PULMONARY ARTERIAL HYPERTENSION
     Dosage: 1 MG, TID
     Route: 048
  6. ADEMPAS [Suspect]
     Active Substance: RIOCIGUAT
     Indication: PULMONARY ARTERIAL HYPERTENSION
     Dosage: 1 MG, TID
     Route: 048
  7. WARFARIN [Concomitant]
     Active Substance: WARFARIN
     Dosage: UNK

REACTIONS (32)
  - Atrial fibrillation [None]
  - Blood potassium decreased [Unknown]
  - Dyspnoea [None]
  - Inguinal hernia repair [None]
  - Pharyngitis [Unknown]
  - Blood magnesium decreased [Unknown]
  - Heart rate increased [None]
  - Contusion [None]
  - Haemorrhage [Unknown]
  - Syncope [Unknown]
  - Drug dose omission [None]
  - Contusion [Unknown]
  - Dyspnoea [Unknown]
  - Fall [None]
  - Fall [None]
  - Dyspnoea [Recovering/Resolving]
  - Palpitations [Not Recovered/Not Resolved]
  - Abnormal loss of weight [None]
  - Eye operation [None]
  - Hernia [Not Recovered/Not Resolved]
  - Cataract [Unknown]
  - Balance disorder [Unknown]
  - Catheterisation cardiac [None]
  - Muscle atrophy [None]
  - Drug dose omission [Unknown]
  - Cardiac disorder [None]
  - Eye infection viral [Unknown]
  - Fatigue [None]
  - Heart rate decreased [None]
  - Fall [None]
  - Limb injury [Unknown]
  - Loss of personal independence in daily activities [None]

NARRATIVE: CASE EVENT DATE: 2017
